FAERS Safety Report 11594667 (Version 1)
Quarter: 2015Q4

REPORT INFORMATION
  Report Type: Spontaneous
  Country: US (occurrence: US)
  Receive Date: 20151005
  Receipt Date: 20151005
  Transmission Date: 20160304
  Serious: No
  Sender: FDA-Public Use
  Company Number: US-UPSHER-SMITH LABORATORIES, INC.-15000262

PATIENT
  Age: 6 Year
  Sex: Female

DRUGS (5)
  1. LEVOCARNITINE. [Concomitant]
     Active Substance: LEVOCARNITINE
     Dosage: UNK, UNK
     Route: 048
  2. KEPPRA [Concomitant]
     Active Substance: LEVETIRACETAM
     Dosage: UNK, UNK
     Route: 048
  3. BACLOFEN. [Suspect]
     Active Substance: BACLOFEN
     Indication: PRODUCT USED FOR UNKNOWN INDICATION
     Dosage: 10 MG, TID
     Route: 048
     Dates: start: 20150115
  4. BANZEL [Concomitant]
     Active Substance: RUFINAMIDE
     Dosage: UNK, UNK
     Route: 048
  5. AMANTADINE HYDROCHLORIDE. [Concomitant]
     Active Substance: AMANTADINE HYDROCHLORIDE
     Dosage: UNK, UNK
     Route: 048

REACTIONS (1)
  - Seizure [Not Recovered/Not Resolved]

NARRATIVE: CASE EVENT DATE: 201501
